FAERS Safety Report 12789960 (Version 1)
Quarter: 2016Q3

REPORT INFORMATION
  Report Type: Spontaneous
  Country: CA (occurrence: CA)
  Receive Date: 20160928
  Receipt Date: 20160928
  Transmission Date: 20161109
  Serious: Yes (Hospitalization, Other)
  Sender: FDA-Public Use
  Company Number: CA-PFIZER INC-2016403968

PATIENT
  Age: 40 Year
  Sex: Male

DRUGS (1)
  1. CHAMPIX [Suspect]
     Active Substance: VARENICLINE TARTRATE
     Indication: SMOKING CESSATION THERAPY
     Dosage: 1 MG, 2X/DAY
     Dates: start: 20160815, end: 201608

REACTIONS (6)
  - Skin burning sensation [Recovered/Resolved]
  - Pyrexia [Recovered/Resolved]
  - Pain [Not Recovered/Not Resolved]
  - Stevens-Johnson syndrome [Not Recovered/Not Resolved]
  - Oral herpes [Not Recovered/Not Resolved]
  - Malaise [Recovered/Resolved]

NARRATIVE: CASE EVENT DATE: 20160822
